FAERS Safety Report 21684204 (Version 1)
Quarter: 2022Q4

REPORT INFORMATION
  Report Type: Spontaneous
  Country: US (occurrence: None)
  Receive Date: 20221202
  Receipt Date: 20221202
  Transmission Date: 20230113
  Serious: Yes (Hospitalization)
  Sender: FDA-Public Use
  Company Number: None

PATIENT
  Age: 97 Year
  Sex: Male
  Weight: 72.30 kg

DRUGS (12)
  1. ENZALUTAMIDE [Suspect]
     Active Substance: ENZALUTAMIDE
     Indication: Prostate cancer
     Dosage: FREQUENCY : DAILY;?
     Route: 048
     Dates: start: 20160929
  2. MULTIPLE VITAMIN-MINERALS [Concomitant]
  3. VITAMINS [Concomitant]
     Active Substance: VITAMINS
  4. CARBOXYMETHYLCELLULOSE SODIUM [Concomitant]
  5. LEVOTHYROXINE [Concomitant]
  6. LISINOPRIL [Concomitant]
     Active Substance: LISINOPRIL
  7. GLIMEPIRIDE [Concomitant]
     Active Substance: GLIMEPIRIDE
  8. POLYETHYLENE GLYCOL [Concomitant]
  9. ENSURE PLUS LIQUID [Concomitant]
  10. LORATADINE [Concomitant]
     Active Substance: LORATADINE
  11. ATORVASTATIN [Concomitant]
     Active Substance: ATORVASTATIN
  12. SYMBICORT [Concomitant]
     Active Substance: BUDESONIDE\FORMOTEROL FUMARATE DIHYDRATE

REACTIONS (3)
  - Subarachnoid haemorrhage [None]
  - Hypercoagulation [None]
  - Cerebral artery embolism [None]

NARRATIVE: CASE EVENT DATE: 20221202
